FAERS Safety Report 7823080-X (Version None)
Quarter: 2011Q4

REPORT INFORMATION
  Report Type: 
  Country: None (occurrence: None)
  Receive Date: 20111018
  Receipt Date: 20101112
  Transmission Date: 20120403
  Serious: No
  Sender: FDA-Public Use
  Company Number: US-ASTRAZENECA-2010SE54174

PATIENT
  Age: 62 Year
  Sex: Male
  Weight: 71.2 kg

DRUGS (4)
  1. SYMBICORT [Suspect]
     Indication: CHRONIC OBSTRUCTIVE PULMONARY DISEASE
     Dosage: 320 MCG BID
     Route: 055
     Dates: start: 20100901
  2. ALBUTEROL [Concomitant]
     Indication: CHRONIC OBSTRUCTIVE PULMONARY DISEASE
  3. LISINOPRIL [Concomitant]
     Indication: HYPERTENSION
  4. PROPRANOLOL [Concomitant]
     Indication: HEPATIC CIRRHOSIS

REACTIONS (3)
  - NASOPHARYNGITIS [None]
  - DRY MOUTH [None]
  - DYSPNOEA [None]
